FAERS Safety Report 26069294 (Version 1)
Quarter: 2025Q4

REPORT INFORMATION
  Report Type: Spontaneous
  Country: US (occurrence: None)
  Receive Date: 20251120
  Receipt Date: 20251120
  Transmission Date: 20260117
  Serious: Yes (Hospitalization)
  Sender: FDA-CTU
  Company Number: None

PATIENT
  Age: 56 Year
  Sex: Female
  Weight: 59.8 kg

DRUGS (3)
  1. PONATINIB [Suspect]
     Active Substance: PONATINIB
     Dates: end: 20251112
  2. VINCRISTINE SULFATE [Suspect]
     Active Substance: VINCRISTINE SULFATE
     Dates: end: 20251031
  3. DASATINIB [Suspect]
     Active Substance: DASATINIB

REACTIONS (13)
  - Pain [None]
  - Pain [None]
  - Pain in extremity [None]
  - Arthralgia [None]
  - Arthralgia [None]
  - Muscular weakness [None]
  - Chills [None]
  - Headache [None]
  - Dizziness [None]
  - Bacterial test positive [None]
  - Vertebral foraminal stenosis [None]
  - Therapy cessation [None]
  - Refusal of treatment by patient [None]

NARRATIVE: CASE EVENT DATE: 20251112
